FAERS Safety Report 21504008 (Version 6)
Quarter: 2023Q1

REPORT INFORMATION
  Report Type: Report from Study
  Country: US (occurrence: US)
  Receive Date: 20221025
  Receipt Date: 20230315
  Transmission Date: 20230418
  Serious: No
  Sender: FDA-Public Use
  Company Number: US-NOVARTISTESTPH-NVSC2022US239678

PATIENT
  Sex: Male

DRUGS (1)
  1. ENTRESTO [Suspect]
     Active Substance: SACUBITRIL\VALSARTAN
     Indication: Product used for unknown indication
     Dosage: 1 DOSAGE FORM, BID
     Route: 048
     Dates: start: 20220918

REACTIONS (9)
  - Weight decreased [Unknown]
  - Blood glucose decreased [Recovering/Resolving]
  - Glycosylated haemoglobin decreased [Unknown]
  - Blood pressure decreased [Recovering/Resolving]
  - Dizziness exertional [Unknown]
  - Gait disturbance [Unknown]
  - Malaise [Unknown]
  - Limb discomfort [Unknown]
  - Asthenia [Unknown]
